FAERS Safety Report 9940972 (Version 3)
Quarter: 2014Q2

REPORT INFORMATION
  Report Type: Spontaneous
  Country: ZA (occurrence: ZA)
  Receive Date: 20140303
  Receipt Date: 20140424
  Transmission Date: 20141212
  Serious: Yes (Life-Threatening, Hospitalization)
  Sender: FDA-Public Use
  Company Number: ZA-JNJFOC-20140300067

PATIENT
  Age: 26 Year
  Sex: Female

DRUGS (5)
  1. DARUNAVIR [Suspect]
     Indication: ANTIRETROVIRAL THERAPY
     Dosage: 2 TABS TWICE DAILY
     Route: 048
  2. RITONAVIR [Suspect]
     Indication: ANTIRETROVIRAL THERAPY
     Route: 048
  3. RALTEGRAVIR [Suspect]
     Indication: ANTIRETROVIRAL THERAPY
     Route: 048
  4. TENOFOVIR [Suspect]
     Indication: ANTIRETROVIRAL THERAPY
     Dosage: AT NIGHT
     Route: 048
  5. MIGRIL [Interacting]
     Indication: MIGRAINE
     Route: 048
     Dates: start: 20140211

REACTIONS (5)
  - Amputation [Unknown]
  - Vasoconstriction [Recovering/Resolving]
  - Drug interaction [Recovering/Resolving]
  - Peripheral vascular disorder [Recovering/Resolving]
  - Contraindication to medical treatment [Unknown]
